FAERS Safety Report 7219867-7 (Version None)
Quarter: 2011Q1

REPORT INFORMATION
  Report Type: 
  Country: None (occurrence: None)
  Receive Date: 20110111
  Receipt Date: 20110107
  Transmission Date: 20110831
  Serious: Yes (Hospitalization)
  Sender: FDA-Public Use
  Company Number: US-ROCHE-740629

PATIENT
  Age: 49 Year
  Sex: Female

DRUGS (7)
  1. DOCETAXEL [Suspect]
     Indication: BREAST CANCER
     Route: 042
     Dates: start: 20100923
  2. CARBOPLATIN [Suspect]
     Indication: BREAST CANCER
     Route: 042
     Dates: start: 20100923
  3. GRANULOCYTE COLONY STIMULATING FACTOR [Concomitant]
  4. TRASTUZUMAB [Suspect]
     Dosage: MAINTENANCE DOSE
     Route: 042
     Dates: start: 20100930
  5. FLU VACCINE [Concomitant]
     Dosage: INFLUENZA VIRUS VAC POLYV
  6. PNEUMOVAX 23 [Concomitant]
     Dosage: PNEUMOCOCCAL VAC NONGSK
  7. TRASTUZUMAB [Suspect]
     Indication: BREAST CANCER
     Dosage: LOADING DOSE
     Route: 042
     Dates: start: 20100923

REACTIONS (9)
  - HAEMOGLOBIN DECREASED [None]
  - NEUTROPENIA [None]
  - CHEST PAIN [None]
  - LEUKOPENIA [None]
  - BLOOD ALKALINE PHOSPHATASE INCREASED [None]
  - ALANINE AMINOTRANSFERASE INCREASED [None]
  - GASTRITIS [None]
  - PYREXIA [None]
  - ASPARTATE AMINOTRANSFERASE INCREASED [None]
